FAERS Safety Report 8438883-0 (Version None)
Quarter: 2012Q2

REPORT INFORMATION
  Report Type: 
  Country: None (occurrence: None)
  Receive Date: 20120615
  Receipt Date: 20120605
  Transmission Date: 20120825
  Serious: Yes (Hospitalization)
  Sender: FDA-Public Use
  Company Number: CA-JNJFOC-20120603886

PATIENT
  Sex: Female
  Weight: 71 kg

DRUGS (3)
  1. PAIN KILLERS [Concomitant]
     Route: 065
  2. REMICADE [Suspect]
     Indication: CROHN'S DISEASE
     Route: 042
     Dates: start: 20111025
  3. SOLU-CORTEF [Concomitant]
     Route: 042

REACTIONS (2)
  - INTESTINAL OBSTRUCTION [None]
  - PSORIATIC ARTHROPATHY [None]
